FAERS Safety Report 4331918-6 (Version None)
Quarter: 2004Q2

REPORT INFORMATION
  Report Type: 
  Country: None (occurrence: None)
  Receive Date: 20040405
  Receipt Date: 20030414
  Transmission Date: 20050107
  Serious: No
  Sender: FDA-Public Use
  Company Number: US-GLAXOSMITHKLINE-A0404794A

PATIENT
  Age: 78 Year
  Sex: Female

DRUGS (3)
  1. SEREVENT [Suspect]
     Indication: EMPHYSEMA
     Dosage: 2PUFF TWICE PER DAY
     Route: 055
     Dates: start: 20030101
  2. FLOVENT [Concomitant]
     Route: 055
  3. COMBIVENT [Concomitant]
     Route: 065

REACTIONS (2)
  - ASTHENIA [None]
  - DIZZINESS [None]
